FAERS Safety Report 9026061 (Version 1)
Quarter: 2013Q1

REPORT INFORMATION
  Report Type: Spontaneous
  Country: US (occurrence: None)
  Receive Date: 20130107
  Receipt Date: 20130107
  Transmission Date: 20140127
  Serious: Yes (Other)
  Sender: FDA-Public Use
  Company Number: 2012-01914

PATIENT
  Sex: Male

DRUGS (2)
  1. MELOXICAM (UNKNOWN) (MELOXICAM) [Suspect]
     Indication: PRODUCT USED FOR UNKNOWN INDICATION
  2. UNSPECIFIED DRUG [Suspect]

REACTIONS (2)
  - Coeliac disease [None]
  - Condition aggravated [None]
